FAERS Safety Report 19059522 (Version 2)
Quarter: 2021Q2

REPORT INFORMATION
  Report Type: Spontaneous
  Country: US (occurrence: US)
  Receive Date: 20210326
  Receipt Date: 20210401
  Transmission Date: 20210717
  Serious: No
  Sender: FDA-Public Use
  Company Number: US-UNITED THERAPEUTICS-UNT-2021-005275

PATIENT
  Sex: Male
  Weight: 72.56 kg

DRUGS (2)
  1. TYVASO [Suspect]
     Active Substance: TREPROSTINIL
     Indication: PULMONARY ARTERIAL HYPERTENSION
     Dosage: UNK
     Dates: start: 20210129
  2. TYVASO [Suspect]
     Active Substance: TREPROSTINIL
     Dosage: 18?54 ?G, QID

REACTIONS (10)
  - Panic attack [Unknown]
  - Dizziness [Unknown]
  - Blood glucose increased [Unknown]
  - Dyspnoea [Unknown]
  - Dysstasia [Unknown]
  - Hypotension [Unknown]
  - Asthenia [Unknown]
  - Syncope [Unknown]
  - Fall [Recovered/Resolved]
  - Hyperventilation [Unknown]
